FAERS Safety Report 20994910 (Version 1)
Quarter: 2022Q2

REPORT INFORMATION
  Report Type: Report from Study
  Country: US (occurrence: US)
  Receive Date: 20220622
  Receipt Date: 20220622
  Transmission Date: 20220720
  Serious: Yes (Other)
  Sender: FDA-Public Use
  Company Number: US-BAXTER-2014BAX021886

PATIENT
  Age: 64 Year
  Sex: Female

DRUGS (6)
  1. HUMAN IMMUNOGLOBULIN G [Suspect]
     Active Substance: HUMAN IMMUNOGLOBULIN G
     Indication: Immunodeficiency common variable
     Dosage: 5GRAM1X A WEEK
     Route: 058
     Dates: start: 2012, end: 201405
  2. HUMAN IMMUNOGLOBULIN G [Suspect]
     Active Substance: HUMAN IMMUNOGLOBULIN G
     Dosage: 6GRAM1X A WEEK
     Route: 058
     Dates: start: 201405
  3. HUMAN IMMUNOGLOBULIN G [Suspect]
     Active Substance: HUMAN IMMUNOGLOBULIN G
     Dosage: 7.5GRAM1X A WEEK
     Route: 058
  4. HUMAN IMMUNOGLOBULIN G [Suspect]
     Active Substance: HUMAN IMMUNOGLOBULIN G
     Dosage: UNK
     Route: 042
  5. CUVITRU [Suspect]
     Active Substance: HUMAN IMMUNOGLOBULIN G
     Indication: Immunodeficiency common variable
     Route: 065
  6. LEVOFLOXACIN [Suspect]
     Active Substance: LEVOFLOXACIN
     Indication: Pneumonia streptococcal
     Dosage: 500MILLIGRAM1X A DAY
     Route: 048
     Dates: start: 20140426, end: 20140505

REACTIONS (14)
  - Infection [Recovering/Resolving]
  - Mycobacterium avium complex infection [Recovered/Resolved]
  - Pneumonia streptococcal [Recovering/Resolving]
  - Cystitis [Recovered/Resolved]
  - Pneumonia pseudomonal [Not Recovered/Not Resolved]
  - Drug ineffective [Recovering/Resolving]
  - Sputum abnormal [Recovering/Resolving]
  - Memory impairment [Not Recovered/Not Resolved]
  - Poor venous access [Unknown]
  - Chills [Recovered/Resolved]
  - Headache [Recovered/Resolved]
  - Pain in extremity [Not Recovered/Not Resolved]
  - Pyrexia [Unknown]
  - Cough [Recovering/Resolving]

NARRATIVE: CASE EVENT DATE: 20130501
